FAERS Safety Report 7702440-1 (Version None)
Quarter: 2011Q3

REPORT INFORMATION
  Report Type: 
  Country: None (occurrence: None)
  Receive Date: 20110823
  Receipt Date: 20110816
  Transmission Date: 20111222
  Serious: Yes (Death, Other)
  Sender: FDA-Public Use
  Company Number: US-ELI_LILLY_AND_COMPANY-US201106004015

PATIENT
  Sex: Female
  Weight: 60 kg

DRUGS (1)
  1. GEMZAR [Suspect]
     Dosage: 1 G, WEEKLY (1/W)
     Route: 065
     Dates: start: 20100611, end: 20100716

REACTIONS (7)
  - SEPSIS [None]
  - RENAL FAILURE ACUTE [None]
  - OBSTRUCTIVE UROPATHY [None]
  - ELECTROLYTE IMBALANCE [None]
  - NEOPLASM PROGRESSION [None]
  - URINARY TRACT INFECTION [None]
  - BLADDER PERFORATION [None]
